FAERS Safety Report 18658047 (Version 1)
Quarter: 2020Q4

REPORT INFORMATION
  Report Type: Report from Study
  Country: US (occurrence: US)
  Receive Date: 20201224
  Receipt Date: 20201224
  Transmission Date: 20210114
  Serious: No
  Sender: FDA-Public Use
  Company Number: US-ACADIA PHARMACEUTICALS INC.-ACA-2020-PIM-003903

PATIENT
  Sex: Female

DRUGS (11)
  1. GABAPENTIN. [Concomitant]
     Active Substance: GABAPENTIN
     Indication: PRODUCT USED FOR UNKNOWN INDICATION
  2. IMITREX [Concomitant]
     Active Substance: SUMATRIPTAN SUCCINATE
     Indication: PRODUCT USED FOR UNKNOWN INDICATION
  3. NUPLAZID [Suspect]
     Active Substance: PIMAVANSERIN TARTRATE
     Indication: MIGRAINE WITHOUT AURA
  4. LAMICTAL [Concomitant]
     Active Substance: LAMOTRIGINE
     Indication: PRODUCT USED FOR UNKNOWN INDICATION
  5. ESTRADIOL. [Concomitant]
     Active Substance: ESTRADIOL
     Indication: PRODUCT USED FOR UNKNOWN INDICATION
  6. AJOVY [Concomitant]
     Active Substance: FREMANEZUMAB-VFRM
     Indication: PRODUCT USED FOR UNKNOWN INDICATION
     Dosage: 25MG/1.5ML
  7. FLUVOXAMINE [Concomitant]
     Active Substance: FLUVOXAMINE
     Indication: PRODUCT USED FOR UNKNOWN INDICATION
  8. CARBIDOPA/LEVODOPA [Concomitant]
     Active Substance: CARBIDOPA\LEVODOPA
     Indication: PRODUCT USED FOR UNKNOWN INDICATION
  9. OXYCODONE HYDROCHLORIDE. [Concomitant]
     Active Substance: OXYCODONE HYDROCHLORIDE
     Indication: PRODUCT USED FOR UNKNOWN INDICATION
  10. NUPLAZID [Suspect]
     Active Substance: PIMAVANSERIN TARTRATE
     Indication: MIGRAINE
     Dosage: 34 MILLIGRAM, QD
     Route: 048
  11. SINGULAIR [Concomitant]
     Active Substance: MONTELUKAST SODIUM
     Indication: PRODUCT USED FOR UNKNOWN INDICATION

REACTIONS (2)
  - Off label use [Unknown]
  - Weight increased [Unknown]
